FAERS Safety Report 6625220-7 (Version None)
Quarter: 2010Q1

REPORT INFORMATION
  Report Type: 
  Country: None (occurrence: None)
  Receive Date: 20100310
  Receipt Date: 20090908
  Transmission Date: 20100710
  Serious: No
  Sender: FDA-Public Use
  Company Number: US-BIOGENIDEC-2009BI028901

PATIENT
  Sex: Female

DRUGS (5)
  1. AVONEX [Suspect]
     Indication: MULTIPLE SCLEROSIS
     Route: 030
     Dates: start: 20030301, end: 20030901
  2. AVONEX [Suspect]
     Route: 030
     Dates: start: 20030901, end: 20031101
  3. AVONEX [Suspect]
     Route: 030
     Dates: start: 20031101
  4. TYSABRI [Concomitant]
     Indication: MULTIPLE SCLEROSIS
     Route: 042
     Dates: start: 20050101, end: 20050101
  5. TYSABRI [Concomitant]
     Route: 042
     Dates: start: 20080916

REACTIONS (1)
  - DRUG TOLERANCE [None]
